FAERS Safety Report 10337564 (Version 1)
Quarter: 2014Q3

REPORT INFORMATION
  Report Type: Spontaneous
  Country: NO (occurrence: NO)
  Receive Date: 20140724
  Receipt Date: 20140724
  Transmission Date: 20150326
  Serious: Yes (Hospitalization)
  Sender: FDA-Public Use
  Company Number: NO-009507513-1407NOR010367

PATIENT
  Age: 48 Year
  Sex: Female

DRUGS (9)
  1. SOBRIL [Concomitant]
     Active Substance: OXAZEPAM
  2. ZOPICLONE [Concomitant]
     Active Substance: ZOPICLONE
     Route: 048
  3. CERAZETTE [Concomitant]
     Active Substance: DESOGESTREL
     Dosage: 75 MG, QD
     Route: 048
  4. EFEXOR DEPOT [Concomitant]
     Active Substance: VENLAFAXINE HYDROCHLORIDE
     Route: 048
  5. LOPERAMIDE HYDROCHLORIDE. [Concomitant]
     Active Substance: LOPERAMIDE HYDROCHLORIDE
     Route: 048
  6. LOSARTAN POTASSIUM. [Suspect]
     Active Substance: LOSARTAN POTASSIUM
     Dosage: 12.5 MG, QD
     Route: 048
  7. LITHIONIT [Suspect]
     Active Substance: LITHIUM SULFATE
     Indication: SCHIZOPHRENIA, CATATONIC TYPE
     Dosage: 125 MG MORNING + 83 MG NIGHT
     Route: 048
     Dates: start: 200404
  8. NYCOPLUS B TOTAL [Concomitant]
     Route: 048
  9. ZYPREXA [Concomitant]
     Active Substance: OLANZAPINE

REACTIONS (1)
  - Blood creatine increased [Recovered/Resolved with Sequelae]

NARRATIVE: CASE EVENT DATE: 20140429
